FAERS Safety Report 17966750 (Version 1)
Quarter: 2020Q3

REPORT INFORMATION
  Report Type: Spontaneous
  Country: US (occurrence: US)
  Receive Date: 20200701
  Receipt Date: 20200701
  Transmission Date: 20201103
  Serious: No
  Sender: FDA-Public Use
  Company Number: US-LUNDBECK-DKLU3017981

PATIENT
  Age: 77 Year
  Sex: Male

DRUGS (3)
  1. MIDODRINE [Concomitant]
     Active Substance: MIDODRINE
     Dosage: INCREASED DOSE
     Route: 065
  2. MIDODRINE [Concomitant]
     Active Substance: MIDODRINE
     Indication: BLOOD PRESSURE MANAGEMENT
     Route: 065
  3. NORTHERA [Suspect]
     Active Substance: DROXIDOPA
     Indication: PARKINSON^S DISEASE
     Route: 048
     Dates: start: 201906

REACTIONS (1)
  - Prostatomegaly [Unknown]
